FAERS Safety Report 20047733 (Version 1)
Quarter: 2021Q4

REPORT INFORMATION
  Report Type: Spontaneous
  Country: US (occurrence: US)
  Receive Date: 20211109
  Receipt Date: 20211109
  Transmission Date: 20220303
  Serious: Yes (Other)
  Sender: FDA-Public Use
  Company Number: US-GLAXOSMITHKLINE-US2021GSK230591

PATIENT
  Sex: Female

DRUGS (14)
  1. RANITIDINE [Suspect]
     Active Substance: RANITIDINE
     Indication: Abdominal discomfort
     Dosage: 25 MG/ML PRESCRIPTION
     Route: 065
     Dates: start: 200410, end: 201805
  2. RANITIDINE [Suspect]
     Active Substance: RANITIDINE
     Dosage: UNKNOWN AT THIS TIME PRESCRIPTION
     Route: 065
     Dates: start: 200410, end: 201805
  3. ZANTAC [Suspect]
     Active Substance: RANITIDINE HYDROCHLORIDE
     Indication: Abdominal discomfort
     Dosage: 25 MG
     Route: 065
     Dates: start: 200602, end: 201201
  4. ZANTAC [Suspect]
     Active Substance: RANITIDINE HYDROCHLORIDE
     Dosage: UNK
  5. RANITIDINE [Suspect]
     Active Substance: RANITIDINE
     Indication: Abdominal discomfort
     Dosage: 25 MG
     Route: 065
     Dates: start: 200602, end: 201201
  6. RANITIDINE [Suspect]
     Active Substance: RANITIDINE
     Dosage: UNK
  7. RANITIDINE [Suspect]
     Active Substance: RANITIDINE
     Indication: Abdominal discomfort
     Dosage: UNKNOWN AT THIS TIME PRESCRIPTION
     Route: 065
     Dates: start: 200410
  8. RANITIDINE [Suspect]
     Active Substance: RANITIDINE
     Dosage: UNK
  9. RANITIDINE [Suspect]
     Active Substance: RANITIDINE
     Indication: Abdominal discomfort
     Dosage: OCCASIONAL|25 MG|PRESCRIPTION
     Route: 065
     Dates: start: 201202, end: 201605
  10. RANITIDINE [Suspect]
     Active Substance: RANITIDINE
     Dosage: OCCASIONAL|UNKNOWN AT THIS TIME|PRESCRIPTION
     Route: 065
     Dates: start: 201202, end: 201605
  11. RANITIDINE [Suspect]
     Active Substance: RANITIDINE
     Indication: Abdominal discomfort
     Dosage: OCCASIONAL|25 MG|PRESCRIPTION
     Route: 065
     Dates: start: 201202, end: 201605
  12. RANITIDINE [Suspect]
     Active Substance: RANITIDINE
     Dosage: OCCASIONAL|UNKNOWN AT THIS TIME|PRESCRIPTION
     Route: 065
     Dates: start: 201202, end: 201605
  13. RANITIDINE HYDROCHLORIDE [Suspect]
     Active Substance: RANITIDINE HYDROCHLORIDE
     Indication: Abdominal discomfort
     Dosage: 25 MG/ML
     Route: 065
     Dates: start: 200410, end: 201805
  14. RANITIDINE HYDROCHLORIDE [Suspect]
     Active Substance: RANITIDINE HYDROCHLORIDE
     Dosage: UNK

REACTIONS (2)
  - Colorectal cancer [Unknown]
  - Oesophageal carcinoma [Unknown]
